FAERS Safety Report 6569938-3 (Version None)
Quarter: 2010Q1

REPORT INFORMATION
  Report Type: 
  Country: None (occurrence: None)
  Receive Date: 20100202
  Receipt Date: 20100202
  Transmission Date: 20100710
  Serious: Yes (Life-Threatening, Other)
  Sender: FDA-Public Use
  Company Number: None

PATIENT
  Age: 51 Year
  Sex: Female
  Weight: 60.3284 kg

DRUGS (1)
  1. ZOLPIDEM [Suspect]
     Indication: INSOMNIA
     Dosage: 1 AT BED TIME NIGHTLY
     Dates: start: 20091027, end: 20100125

REACTIONS (3)
  - AMNESIA [None]
  - IMPAIRED DRIVING ABILITY [None]
  - ROAD TRAFFIC ACCIDENT [None]
